FAERS Safety Report 11983473 (Version 5)
Quarter: 2016Q4

REPORT INFORMATION
  Report Type: Spontaneous
  Country: CA (occurrence: CA)
  Receive Date: 20160201
  Receipt Date: 20161017
  Transmission Date: 20170206
  Serious: Yes (Death, Other)
  Sender: FDA-Public Use
  Company Number: CA-GILEAD-2016-0195608

PATIENT
  Age: 77 Year
  Sex: Female

DRUGS (45)
  1. LYSINE [Concomitant]
     Active Substance: LYSINE
     Dosage: UNK
  2. CURCUMIN [Concomitant]
     Active Substance: CURCUMIN
     Indication: PRODUCT USED FOR UNKNOWN INDICATION
     Dosage: UNK
  3. CURCUMIN [Concomitant]
     Active Substance: CURCUMIN
     Dosage: UNK
  4. ADCIRCA [Concomitant]
     Active Substance: TADALAFIL
     Dosage: UNK
  5. FUROSEMIDE. [Concomitant]
     Active Substance: FUROSEMIDE
     Dosage: UNK
  6. TRIAZOLAM. [Concomitant]
     Active Substance: TRIAZOLAM
     Dosage: UNK
  7. TRIAZOLAM. [Concomitant]
     Active Substance: TRIAZOLAM
     Dosage: UNK
  8. PILOCARPINE. [Concomitant]
     Active Substance: PILOCARPINE
     Dosage: UNK
  9. LYSINE [Concomitant]
     Active Substance: LYSINE
     Dosage: UNK
  10. CURCUMIN [Concomitant]
     Active Substance: CURCUMIN
     Dosage: UNK
  11. AMBRISENTAN [Suspect]
     Active Substance: AMBRISENTAN
     Indication: PULMONARY ARTERIAL HYPERTENSION
     Dosage: 10 MG, 1D
     Route: 065
     Dates: start: 20141017
  12. NIFEDIPINE. [Concomitant]
     Active Substance: NIFEDIPINE
     Dosage: UNK
  13. FUROSEMIDE. [Concomitant]
     Active Substance: FUROSEMIDE
     Dosage: UNK
  14. ATENOLOL. [Concomitant]
     Active Substance: ATENOLOL
     Dosage: UNK
  15. ASA [Concomitant]
     Active Substance: ASPIRIN
     Dosage: UNK
  16. LYSINE [Concomitant]
     Active Substance: LYSINE
     Dosage: UNK
  17. CURCUMIN [Concomitant]
     Active Substance: CURCUMIN
     Dosage: UNK
  18. GLUCOSAMINE [Concomitant]
     Active Substance: GLUCOSAMINE
     Dosage: UNK
  19. GLUCOSAMINE [Concomitant]
     Active Substance: GLUCOSAMINE
     Dosage: UNK
  20. GLUCOSAMINE [Concomitant]
     Active Substance: GLUCOSAMINE
     Dosage: UNK
  21. NIFEDIPINE. [Concomitant]
     Active Substance: NIFEDIPINE
     Dosage: UNK
  22. LIPITOR [Concomitant]
     Active Substance: ATORVASTATIN CALCIUM
     Dosage: UNK
  23. COENZYME Q10 [Concomitant]
     Active Substance: UBIDECARENONE
     Dosage: UNK
  24. PRIMROSE [Concomitant]
     Indication: PRODUCT USED FOR UNKNOWN INDICATION
     Dosage: UNK
  25. NIFEDIPINE. [Concomitant]
     Active Substance: NIFEDIPINE
     Dosage: UNK
  26. FUROSEMIDE. [Concomitant]
     Active Substance: FUROSEMIDE
     Dosage: UNK
  27. TRIAZOLAM. [Concomitant]
     Active Substance: TRIAZOLAM
     Dosage: UNK
  28. VITAMIN D [Concomitant]
     Active Substance: CHOLECALCIFEROL
     Dosage: UNK
  29. ALEVE [Concomitant]
     Active Substance: NAPROXEN SODIUM
     Dosage: UNK
  30. TYLENOL [Concomitant]
     Active Substance: ACETAMINOPHEN
     Dosage: UNK
  31. METAMUCIL [Concomitant]
     Active Substance: PLANTAGO SEED
     Dosage: UNK
  32. FUROSEMIDE. [Concomitant]
     Active Substance: FUROSEMIDE
     Dosage: UNK
  33. TRIAZOLAM. [Concomitant]
     Active Substance: TRIAZOLAM
     Dosage: UNK
  34. TRIAZOLAM. [Concomitant]
     Active Substance: TRIAZOLAM
     Dosage: UNK
  35. CURCUMIN [Concomitant]
     Active Substance: CURCUMIN
     Dosage: UNK
  36. GLUCOSAMINE [Concomitant]
     Active Substance: GLUCOSAMINE
     Dosage: UNK
  37. LUTEIN                             /01638501/ [Concomitant]
     Active Substance: LUTEIN
     Dosage: UNK
  38. NIFEDIPINE. [Concomitant]
     Active Substance: NIFEDIPINE
     Dosage: UNK
  39. NIFEDIPINE. [Concomitant]
     Active Substance: NIFEDIPINE
     Dosage: UNK
  40. FUROSEMIDE. [Concomitant]
     Active Substance: FUROSEMIDE
     Dosage: UNK
  41. LYSINE [Concomitant]
     Active Substance: LYSINE
     Dosage: UNK
  42. LYSINE [Concomitant]
     Active Substance: LYSINE
     Dosage: UNK
  43. VITAMIN C [Concomitant]
     Active Substance: ASCORBIC ACID
     Dosage: UNK
  44. GLUCOSAMINE [Concomitant]
     Active Substance: GLUCOSAMINE
     Dosage: UNK
  45. OMEGA 3                            /01334101/ [Concomitant]
     Active Substance: OMEGA-3 FATTY ACIDS
     Dosage: UNK

REACTIONS (9)
  - Scleroderma [Not Recovered/Not Resolved]
  - Drug effect decreased [Not Recovered/Not Resolved]
  - Death [Fatal]
  - Oxygen saturation decreased [Not Recovered/Not Resolved]
  - Hypoaesthesia [Not Recovered/Not Resolved]
  - Condition aggravated [Not Recovered/Not Resolved]
  - Sjogren^s syndrome [Not Recovered/Not Resolved]
  - Burning sensation [Not Recovered/Not Resolved]
  - Palpitations [Not Recovered/Not Resolved]

NARRATIVE: CASE EVENT DATE: 20161003
